FAERS Safety Report 12737877 (Version 1)
Quarter: 2016Q3

REPORT INFORMATION
  Report Type: Spontaneous
  Country: US (occurrence: US)
  Receive Date: 20160912
  Receipt Date: 20160912
  Transmission Date: 20161109
  Serious: Yes (Other)
  Sender: FDA-Public Use
  Company Number: None

PATIENT
  Age: 55 Year
  Sex: Female
  Weight: 65.7 kg

DRUGS (5)
  1. NPLATE [Suspect]
     Active Substance: ROMIPLOSTIM
     Indication: PLATELET DISORDER
     Dosage: OTHER STRENGTH:;OTHER DOSE:;OTHER FREQUENCY:ONCE WEEKLY;OTHER ROUTE:
     Route: 030
     Dates: start: 20120301
  2. FISH OIL [Concomitant]
     Active Substance: FISH OIL
  3. VITAMIN B12 [Concomitant]
     Active Substance: CYANOCOBALAMIN
  4. ARMOUR THYROID [Concomitant]
     Active Substance: THYROID, PORCINE
  5. DAILY MULTIVITAMIN [Concomitant]
     Active Substance: VITAMINS

REACTIONS (2)
  - Incorrect route of drug administration [None]
  - Laboratory test abnormal [None]

NARRATIVE: CASE EVENT DATE: 20151201
